FAERS Safety Report 24572360 (Version 1)
Quarter: 2024Q4

REPORT INFORMATION
  Report Type: Spontaneous
  Country: CH (occurrence: CH)
  Receive Date: 20241101
  Receipt Date: 20241101
  Transmission Date: 20250115
  Serious: Yes (Hospitalization)
  Sender: ELI LILLY AND COMPANY
  Company Number: None

PATIENT
  Age: 77 Year
  Sex: Female

DRUGS (12)
  1. CYMBALTA [Interacting]
     Active Substance: DULOXETINE HYDROCHLORIDE
     Indication: Depression
     Dosage: 30 MG, DAILY
     Route: 065
     Dates: start: 20240601, end: 20240607
  2. CYMBALTA [Interacting]
     Active Substance: DULOXETINE HYDROCHLORIDE
     Dosage: 60 MG, DAILY
     Route: 065
     Dates: start: 20240608, end: 20240710
  3. QUETIAPINE [Interacting]
     Active Substance: QUETIAPINE
     Indication: Product used for unknown indication
     Dosage: 25 MG, DAILY
     Route: 065
     Dates: start: 20240329, end: 20240511
  4. QUETIAPINE [Interacting]
     Active Substance: QUETIAPINE
     Dosage: 12.5 MG, DAILY
     Route: 065
     Dates: start: 20240618, end: 20240620
  5. QUETIAPINE [Interacting]
     Active Substance: QUETIAPINE
     Dosage: 12.5 MG, DAILY
     Route: 065
     Dates: start: 20240621, end: 20240624
  6. QUETIAPINE [Interacting]
     Active Substance: QUETIAPINE
     Dosage: 12.5 MG, DAILY
     Route: 065
     Dates: start: 20240329, end: 20240511
  7. QUETIAPINE [Interacting]
     Active Substance: QUETIAPINE
     Dosage: 12.5 MG, DAILY
     Route: 065
     Dates: start: 20240625, end: 20240710
  8. CALCIUM\CHOLECALCIFEROL [Concomitant]
     Active Substance: CALCIUM\CHOLECALCIFEROL
     Indication: Product used for unknown indication
     Dosage: 1 DOSAGE FORM, UNK
     Route: 065
  9. FEMARA [Concomitant]
     Active Substance: LETROZOLE
     Indication: Product used for unknown indication
     Dosage: 2.5 MG, UNKNOWN
     Route: 065
  10. LORAZEPAM [Concomitant]
     Active Substance: LORAZEPAM
     Indication: Product used for unknown indication
     Dosage: .5 MG, UNK
     Route: 065
  11. LORAZEPAM [Concomitant]
     Active Substance: LORAZEPAM
     Dosage: 1 MG, UNKNOWN
     Route: 065
  12. MELATONIN [Concomitant]
     Active Substance: MELATONIN
     Indication: Product used for unknown indication
     Dosage: 2 MG, UNKNOWN
     Route: 065

REACTIONS (8)
  - Clonus [Recovered/Resolved]
  - Hyperventilation [Recovered/Resolved]
  - Hyperthermia [Recovered/Resolved]
  - Hyperreflexia [Recovered/Resolved]
  - Serotonin syndrome [Recovered/Resolved]
  - Hyperhidrosis [Recovered/Resolved]
  - Tachycardia [Recovered/Resolved]
  - Drug interaction [Recovered/Resolved]

NARRATIVE: CASE EVENT DATE: 20240710
